FAERS Safety Report 8563820-8 (Version None)
Quarter: 2012Q3

REPORT INFORMATION
  Report Type: 
  Country: None (occurrence: None)
  Receive Date: 20120727
  Receipt Date: 20120727
  Transmission Date: 20120928
  Serious: Yes (Hospitalization)
  Sender: FDA-Public Use
  Company Number: None

PATIENT
  Sex: Female
  Weight: 57.3 kg

DRUGS (4)
  1. FLUOROURACIL [Suspect]
     Dosage: 4620 MG, (660 MG BY BOLUS INJECTION;3960 MG BY CONTINUOUS INFUSION OVER 48 HOURS)
  2. ELOXATIN [Suspect]
     Dosage: 140 MG
  3. BEVACIZUMAB (RHUMAB VEGF) [Suspect]
     Dosage: 286 MG
  4. LEUCOVORIN CALCIUM [Suspect]
     Dosage: 660 MG

REACTIONS (1)
  - DIARRHOEA [None]
